FAERS Safety Report 5837693-8 (Version None)
Quarter: 2008Q3

REPORT INFORMATION
  Report Type: 
  Country: None (occurrence: None)
  Receive Date: 20080807
  Receipt Date: 20080731
  Transmission Date: 20090109
  Serious: Yes (Death, Hospitalization)
  Sender: FDA-Public Use
  Company Number: US-GENENTECH-260859

PATIENT
  Sex: Male
  Weight: 102.95 kg

DRUGS (10)
  1. BEVACIZUMAB [Suspect]
     Indication: COLORECTAL CANCER METASTATIC
     Dosage: 7.5 MG/KG, UNK
     Dates: start: 20071031
  2. OXALIPLATIN [Suspect]
     Indication: COLORECTAL CANCER METASTATIC
     Dosage: 130 MG/M2, UNK
     Dates: start: 20071030
  3. CETUXIMAB [Concomitant]
     Indication: COLORECTAL CANCER METASTATIC
     Dates: start: 20071030
  4. MEDICATION (UNK INGREDIENT) [Concomitant]
     Indication: DRUG USE FOR UNKNOWN INDICATION
  5. LACTULOSE [Concomitant]
     Indication: HEPATIC ENCEPHALOPATHY
  6. LASIX [Concomitant]
     Indication: ASCITES
  7. ALDACTONE [Concomitant]
     Indication: ASCITES
  8. DIURETICS [Concomitant]
     Indication: DRUG USE FOR UNKNOWN INDICATION
  9. PLASMANATE [Concomitant]
     Indication: DRUG USE FOR UNKNOWN INDICATION
  10. CEFOTAXIME SODIUM [Concomitant]
     Indication: PERITONITIS BACTERIAL

REACTIONS (1)
  - RENAL FAILURE [None]
